FAERS Safety Report 24293718 (Version 1)
Quarter: 2024Q3

REPORT INFORMATION
  Report Type: Spontaneous
  Country: US (occurrence: None)
  Receive Date: 20240906
  Receipt Date: 20240906
  Transmission Date: 20241017
  Serious: No
  Sender: DOMPE FARMACEUTICI
  Company Number: US-FARMAPROD-202308-202402-0584

PATIENT
  Sex: Male
  Weight: 88.9 kg

DRUGS (15)
  1. OXERVATE [Suspect]
     Active Substance: CENEGERMIN-BKBJ
     Indication: Neurotrophic keratopathy
     Route: 047
     Dates: start: 20240129
  2. OMEPRAZOLE [Concomitant]
     Active Substance: OMEPRAZOLE
  3. ASPIRIN [Concomitant]
     Active Substance: ASPIRIN
  4. OFLOXACIN [Concomitant]
     Active Substance: OFLOXACIN
  5. ACETAMINOPHEN [Concomitant]
     Active Substance: ACETAMINOPHEN
  6. PREDNISOLONE ACETATE [Concomitant]
     Active Substance: PREDNISOLONE ACETATE
  7. ATORVASTATIN CALCIUM [Concomitant]
     Active Substance: ATORVASTATIN CALCIUM
  8. LOVASTATIN [Concomitant]
     Active Substance: LOVASTATIN
  9. PREDNISONE [Concomitant]
     Active Substance: PREDNISONE
  10. ATROPINE SULFATE [Concomitant]
     Active Substance: ATROPINE SULFATE
  11. VALACYCLOVIR [Concomitant]
     Active Substance: VALACYCLOVIR HYDROCHLORIDE
  12. FLUCONAZOLE [Concomitant]
     Active Substance: FLUCONAZOLE
  13. METOPROLOL TARTRATE [Concomitant]
     Active Substance: METOPROLOL TARTRATE
  14. LISINOPRIL [Concomitant]
     Active Substance: LISINOPRIL
  15. RANOLAZINE [Concomitant]
     Active Substance: RANOLAZINE
     Dosage: EXTENDED RELEASE FOR 12 HOURS.

REACTIONS (1)
  - Therapy interrupted [Unknown]
